FAERS Safety Report 9611030 (Version 1)
Quarter: 2013Q4

REPORT INFORMATION
  Report Type: Spontaneous
  Country: IT (occurrence: IT)
  Receive Date: 20131009
  Receipt Date: 20131009
  Transmission Date: 20140711
  Serious: Yes (Hospitalization)
  Sender: FDA-Public Use
  Company Number: IT-VIIV HEALTHCARE LIMITED-B0928356A

PATIENT
  Age: 41 Year
  Sex: Female

DRUGS (9)
  1. COMBIVIR [Suspect]
     Indication: HIV INFECTION
     Dosage: 1Z PER DAY
     Route: 048
     Dates: start: 20130101, end: 20130828
  2. DEPAKIN [Suspect]
     Indication: PERSONALITY DISORDER
     Dosage: 2Z PER DAY
     Route: 048
     Dates: start: 20030601, end: 20130828
  3. TALOFEN [Concomitant]
     Route: 048
  4. SEROQUEL [Concomitant]
  5. ENTUMINE CLOTIAPINE [Concomitant]
  6. ZOLOFT [Concomitant]
  7. ZYPREXA [Concomitant]
  8. RIVOTRIL [Concomitant]
     Route: 048
  9. NEVIRAPINE [Concomitant]

REACTIONS (3)
  - Drug interaction [Recovering/Resolving]
  - Anaemia [Recovering/Resolving]
  - Neutropenia [Recovering/Resolving]
